FAERS Safety Report 7184172-4 (Version None)
Quarter: 2010Q4

REPORT INFORMATION
  Report Type: 
  Country: None (occurrence: None)
  Receive Date: 20101222
  Receipt Date: 20101214
  Transmission Date: 20110411
  Serious: Yes (Other)
  Sender: FDA-Public Use
  Company Number: CN-ASTRAZENECA-2010SE59053

PATIENT
  Age: 829 Month
  Sex: Male

DRUGS (6)
  1. PULMICORT RESPULES [Suspect]
     Indication: CHRONIC OBSTRUCTIVE PULMONARY DISEASE
     Route: 055
     Dates: start: 20101201
  2. BRICANYL [Suspect]
     Indication: CHRONIC OBSTRUCTIVE PULMONARY DISEASE
     Route: 055
     Dates: start: 20101201
  3. IMIPENEM AND CILASTATIN [Concomitant]
  4. TAZOCIN [Concomitant]
  5. BROMHEXINE HYDROCHLORIDE [Concomitant]
  6. METHYLPREDNISOLONE ACETATE [Concomitant]
     Route: 042

REACTIONS (1)
  - HAEMATEMESIS [None]
